FAERS Safety Report 18081558 (Version 1)
Quarter: 2020Q3

REPORT INFORMATION
  Report Type: Spontaneous
  Country: US (occurrence: US)
  Receive Date: 20200728
  Receipt Date: 20200728
  Transmission Date: 20201103
  Serious: No
  Sender: FDA-Public Use
  Company Number: US-PFIZER INC-2019431946

PATIENT
  Age: 60 Year
  Sex: Female

DRUGS (2)
  1. DILANTIN [Suspect]
     Active Substance: PHENYTOIN
     Indication: SEIZURE
     Dosage: 100 MG, 2X/DAY (TWICE A DAY)
     Route: 048
     Dates: start: 20191002
  2. DILANTIN [Suspect]
     Active Substance: PHENYTOIN
     Dosage: 100 MG, 3X/DAY(1 TABLET BY MOUTH 3 TIMES A DAY)
     Route: 048
     Dates: start: 20200723

REACTIONS (1)
  - Anticonvulsant drug level decreased [Unknown]
